FAERS Safety Report 24133573 (Version 1)
Quarter: 2024Q3

REPORT INFORMATION
  Report Type: Report from Study
  Country: MX (occurrence: None)
  Receive Date: 20240724
  Receipt Date: 20240724
  Transmission Date: 20241016
  Serious: Yes (Disabling, Other)
  Sender: ASTRAZENECA
  Company Number: 2020SE90845

PATIENT
  Age: 57 Year
  Sex: Male
  Weight: 60 kg

DRUGS (4)
  1. DAPAGLIFLOZIN [Suspect]
     Active Substance: DAPAGLIFLOZIN
     Indication: Type 2 diabetes mellitus
     Route: 048
     Dates: start: 20200714
  2. HUMALOG [Suspect]
     Active Substance: INSULIN LISPRO
     Dosage: 10IU
  3. ISOPHANE INSULIN [Suspect]
     Active Substance: INSULIN NOS
     Dates: end: 20200716
  4. INSULIN NOS [Concomitant]
     Active Substance: INSULIN NOS
     Indication: Blood glucose increased
     Dosage: TO TAKE 10 UNITS OF RAPID INSULIN AND 10 UNITS OF PROLONGED-RELEASE INSULIN

REACTIONS (2)
  - Musculoskeletal stiffness [Recovered/Resolved]
  - Movement disorder [Recovered/Resolved]

NARRATIVE: CASE EVENT DATE: 20200716
